FAERS Safety Report 19072156 (Version 1)
Quarter: 2021Q1

REPORT INFORMATION
  Report Type: Spontaneous
  Country: US (occurrence: US)
  Receive Date: 20210326
  Receipt Date: 20210326
  Transmission Date: 20210420
  Serious: No
  Sender: FDA-Public Use
  Company Number: None

PATIENT
  Age: 69 Year
  Sex: Male

DRUGS (1)
  1. SACUBITRIL/VALSARTAN SACUBITRIL 24MG/VALSARTAN 26MG TAB) [Suspect]
     Active Substance: SACUBITRIL\VALSARTAN
     Dates: start: 20210119

REACTIONS (2)
  - Pruritus [None]
  - Hypertension [None]

NARRATIVE: CASE EVENT DATE: 20210119
